FAERS Safety Report 6915354-1 (Version None)
Quarter: 2010Q3

REPORT INFORMATION
  Report Type: 
  Country: None (occurrence: None)
  Receive Date: 20100809
  Receipt Date: 20091112
  Transmission Date: 20110219
  Serious: No
  Sender: FDA-Public Use
  Company Number: US-ABBOTT-09P-163-0609208-00

PATIENT
  Sex: Female
  Weight: 52.21 kg

DRUGS (4)
  1. DEPAKOTE ER [Suspect]
     Indication: BIPOLAR DISORDER
     Route: 048
     Dates: start: 20090805, end: 20090821
  2. DEPAKOTE ER [Suspect]
     Dosage: IN AM AND PM
     Route: 048
     Dates: start: 20090822, end: 20091001
  3. DEPAKOTE ER [Suspect]
     Route: 048
     Dates: start: 20091001, end: 20091001
  4. XANAX [Concomitant]
     Indication: ANXIETY

REACTIONS (5)
  - DEVICE BREAKAGE [None]
  - GINGIVAL PAIN [None]
  - GINGIVAL SWELLING [None]
  - TOOTH INFECTION [None]
  - WEIGHT DECREASED [None]
